FAERS Safety Report 10531145 (Version 2)
Quarter: 2014Q4

REPORT INFORMATION
  Report Type: Report from Study
  Country: ES (occurrence: ES)
  Receive Date: 20141021
  Receipt Date: 20141103
  Transmission Date: 20150529
  Serious: Yes (Hospitalization)
  Sender: FDA-Public Use
  Company Number: ES-TEVA-516246ISR

PATIENT
  Age: 57 Year
  Sex: Female
  Weight: 57.5 kg

DRUGS (2)
  1. CARBOPLATIN. [Suspect]
     Active Substance: CARBOPLATIN
     Indication: SEROUS CYSTADENOCARCINOMA OVARY
     Route: 042
     Dates: start: 20140320
  2. MYOCET [Suspect]
     Active Substance: DOXORUBICIN
     Indication: SEROUS CYSTADENOCARCINOMA OVARY
     Route: 042
     Dates: start: 20140320

REACTIONS (1)
  - Pancytopenia [Recovered/Resolved]

NARRATIVE: CASE EVENT DATE: 20141013
